FAERS Safety Report 21239865 (Version 1)
Quarter: 2022Q3

REPORT INFORMATION
  Report Type: Spontaneous
  Country: CN (occurrence: CN)
  Receive Date: 20220822
  Receipt Date: 20220822
  Transmission Date: 20221026
  Serious: Yes (Life-Threatening, Other)
  Sender: FDA-Public Use
  Company Number: CN-SA-SAC20220819000841

PATIENT
  Age: 46 Year
  Sex: Female

DRUGS (1)
  1. ELOXATIN [Suspect]
     Active Substance: OXALIPLATIN
     Indication: Chemotherapy
     Dosage: 200 MG QD
     Route: 041
     Dates: start: 20220804, end: 20220804

REACTIONS (5)
  - Anuria [Recovering/Resolving]
  - Shock [Recovering/Resolving]
  - Flushing [Recovering/Resolving]
  - Conjunctival hyperaemia [Recovering/Resolving]
  - Blood pressure decreased [Recovering/Resolving]

NARRATIVE: CASE EVENT DATE: 20220804
